FAERS Safety Report 6033959-X (Version None)
Quarter: 2009Q1

REPORT INFORMATION
  Report Type: 
  Country: None (occurrence: None)
  Receive Date: 20090112
  Receipt Date: 20090106
  Transmission Date: 20090719
  Serious: Yes (Hospitalization, Other)
  Sender: FDA-Public Use
  Company Number: PHEH2006US14714

PATIENT
  Sex: Male
  Weight: 11.337 kg

DRUGS (6)
  1. ELIDEL [Suspect]
     Indication: ECZEMA
     Dosage: UNK, UNK
     Route: 061
     Dates: start: 20031217
  2. ELIDEL [Suspect]
     Dates: start: 20040327
  3. ELIDEL [Suspect]
     Dates: start: 20040417
  4. ELIDEL [Suspect]
     Dates: start: 20041025
  5. ELOCON [Concomitant]
     Dosage: UNK, BID
     Dates: start: 20030101
  6. ATARAX [Concomitant]
     Indication: ECZEMA
     Dates: start: 20031216, end: 20041001

REACTIONS (50)
  - ABDOMINAL PAIN [None]
  - ABNORMAL BEHAVIOUR [None]
  - ACUTE LYMPHOCYTIC LEUKAEMIA [None]
  - ANOREXIA [None]
  - ARTHRALGIA [None]
  - BLISTER [None]
  - CENTRAL LINE INFECTION [None]
  - CHEILITIS [None]
  - CHILLS [None]
  - CRYING [None]
  - DIARRHOEA [None]
  - DISCOMFORT [None]
  - DRUG HYPERSENSITIVITY [None]
  - DYSURIA [None]
  - EAR DISCOMFORT [None]
  - EAR PAIN [None]
  - EAR TUBE INSERTION [None]
  - ERYTHEMA [None]
  - GAIT DISTURBANCE [None]
  - GASTROOESOPHAGEAL REFLUX DISEASE [None]
  - HEART RATE INCREASED [None]
  - HERPES VIRUS INFECTION [None]
  - HYPERPHAGIA [None]
  - INSOMNIA [None]
  - IRRITABILITY [None]
  - JOINT SPRAIN [None]
  - MUCOSAL INFLAMMATION [None]
  - NAUSEA [None]
  - NEUTROPENIA [None]
  - ORAL PAIN [None]
  - OTITIS MEDIA [None]
  - OTORRHOEA [None]
  - PAIN IN EXTREMITY [None]
  - PALMAR-PLANTAR ERYTHRODYSAESTHESIA SYNDROME [None]
  - PANCYTOPENIA [None]
  - PHARYNGITIS STREPTOCOCCAL [None]
  - PYREXIA [None]
  - RASH [None]
  - RESPIRATORY RATE INCREASED [None]
  - RETCHING [None]
  - RHINORRHOEA [None]
  - SINUSITIS [None]
  - STAPHYLOCOCCAL BACTERAEMIA [None]
  - STOMATITIS [None]
  - TACHYPNOEA [None]
  - VIRAL PHARYNGITIS [None]
  - VIRAL SKIN INFECTION [None]
  - VOMITING [None]
  - WEIGHT DECREASED [None]
  - WHITE BLOOD CELL COUNT DECREASED [None]
